FAERS Safety Report 6291354-2 (Version None)
Quarter: 2009Q3

REPORT INFORMATION
  Report Type: 
  Country: None (occurrence: None)
  Receive Date: 20090730
  Receipt Date: 20090727
  Transmission Date: 20100115
  Serious: Yes (Death, Life-Threatening, Hospitalization, Other)
  Sender: FDA-Public Use
  Company Number: US-BRISTOL-MYERS SQUIBB COMPANY-14717300

PATIENT
  Age: 52 Year
  Sex: Male
  Weight: 109 kg

DRUGS (14)
  1. TAXOL [Suspect]
     Indication: NON-SMALL CELL LUNG CANCER
     Dosage: CYCLIC
     Route: 042
     Dates: start: 20090701
  2. CARBOPLATIN [Suspect]
     Indication: NON-SMALL CELL LUNG CANCER
     Dosage: CYCLIC
     Route: 042
     Dates: start: 20090701
  3. ISOVUE-128 [Suspect]
     Dosage: ISOVUE-300
  4. MORPHINE [Concomitant]
     Indication: MUSCULOSKELETAL PAIN
     Dosage: TAKEN AS IMMEDIATED RELEASE (IR) AND EXTENDED (EXT) RELEASE.
     Dates: start: 20090501
  5. MORPHINE [Concomitant]
     Indication: ABDOMINAL PAIN
     Dosage: TAKEN AS IMMEDIATED RELEASE (IR) AND EXTENDED (EXT) RELEASE.
     Dates: start: 20090501
  6. HYDROCODONE [Concomitant]
     Indication: MUSCULOSKELETAL PAIN
     Dates: start: 20090501
  7. HYDROCODONE [Concomitant]
     Indication: ABDOMINAL PAIN
     Dates: start: 20090501
  8. ALBUTEROL [Concomitant]
     Indication: DYSPNOEA
     Dates: start: 20090601
  9. FUROSEMIDE [Concomitant]
     Indication: OEDEMA
     Dates: start: 20090701
  10. POTASSIUM CHLORIDE [Concomitant]
     Indication: SUPPLEMENTATION THERAPY
     Dates: start: 20090701
  11. OXYCODONE [Concomitant]
     Indication: MUSCULOSKELETAL PAIN
     Dates: start: 20090610
  12. OXYCODONE [Concomitant]
     Indication: ABDOMINAL PAIN
     Dates: start: 20090610
  13. GUAIFENESIN [Concomitant]
     Indication: COUGH
  14. IBUPROFEN [Concomitant]
     Indication: PAIN

REACTIONS (2)
  - HYPOTENSION [None]
  - THROMBOCYTOPENIA [None]
